FAERS Safety Report 17428786 (Version 1)
Quarter: 2020Q1

REPORT INFORMATION
  Report Type: Spontaneous
  Country: DE (occurrence: DE)
  Receive Date: 20200218
  Receipt Date: 20200218
  Transmission Date: 20200409
  Serious: Yes (Other)
  Sender: FDA-Public Use
  Company Number: DE-PFIZER INC-2020068399

PATIENT
  Sex: Female

DRUGS (1)
  1. IBRANCE [Suspect]
     Active Substance: PALBOCICLIB
     Indication: BONE CANCER

REACTIONS (8)
  - White blood cell count decreased [Unknown]
  - Off label use [Unknown]
  - Vagus nerve paralysis [Unknown]
  - Blood calcium decreased [Unknown]
  - Dyspnoea [Unknown]
  - Dysphagia [Unknown]
  - Speech disorder [Unknown]
  - Product use in unapproved indication [Unknown]
